FAERS Safety Report 4560771-0 (Version None)
Quarter: 2005Q1

REPORT INFORMATION
  Report Type: 
  Country: None (occurrence: None)
  Receive Date: 20050124
  Receipt Date: 20050113
  Transmission Date: 20050727
  Serious: Yes (Hospitalization)
  Sender: FDA-Public Use
  Company Number: BEWYE317805JAN05

PATIENT
  Age: 49 Year
  Sex: Female

DRUGS (1)
  1. RAPAMUNE [Suspect]
     Indication: PROPHYLAXIS AGAINST TRANSPLANT REJECTION
     Dosage: 5 MG 1X PER 1 DAY ORAL
     Route: 048
     Dates: start: 20041025, end: 20050105

REACTIONS (3)
  - CYTOMEGALOVIRUS INFECTION [None]
  - LUNG DISORDER [None]
  - PYREXIA [None]
